FAERS Safety Report 6923643-X (Version None)
Quarter: 2010Q3

REPORT INFORMATION
  Report Type: 
  Country: None (occurrence: None)
  Receive Date: 20100813
  Receipt Date: 20100810
  Transmission Date: 20110219
  Serious: Yes (Hospitalization)
  Sender: FDA-Public Use
  Company Number: A0875638A

PATIENT
  Age: 37 Year
  Sex: Female

DRUGS (2)
  1. TRIZIVIR [Suspect]
     Indication: ANTIRETROVIRAL THERAPY
     Dosage: 2TAB PER DAY
     Route: 048
     Dates: start: 20100304
  2. RETROVIR [Suspect]
     Indication: ANTIRETROVIRAL THERAPY
     Dosage: 480MGD PER DAY
     Route: 042
     Dates: start: 20100613, end: 20100613

REACTIONS (4)
  - ADVERSE EVENT [None]
  - DRUG EXPOSURE DURING PREGNANCY [None]
  - HYPERTENSION [None]
  - PREMATURE LABOUR [None]
